FAERS Safety Report 9732977 (Version 2)
Quarter: 2013Q4

REPORT INFORMATION
  Report Type: Spontaneous
  Country: US (occurrence: US)
  Receive Date: 20131204
  Receipt Date: 20131204
  Transmission Date: 20140711
  Serious: No
  Sender: FDA-Public Use
  Company Number: US-GILEAD-2008-0019508

PATIENT
  Age: 81 Year
  Sex: Female
  Weight: 109.77 kg

DRUGS (10)
  1. LETAIRIS [Suspect]
     Indication: PULMONARY ARTERIAL HYPERTENSION
     Dosage: TAKE AS DIRECTED
     Route: 048
     Dates: start: 20080820
  2. LISINOPRIL [Concomitant]
  3. ATENOLOL [Concomitant]
  4. NORVASC [Concomitant]
  5. CLONIDINE [Concomitant]
  6. ALLOPURINOL [Concomitant]
  7. CYMBALTA [Concomitant]
  8. VYTORIN [Concomitant]
  9. ASPIRIN [Concomitant]
  10. VITAMIN C [Concomitant]

REACTIONS (4)
  - Left ventricular hypertrophy [Unknown]
  - Pulmonary hypertension [Unknown]
  - Wheezing [Unknown]
  - Dyspnoea [Unknown]
